FAERS Safety Report 6963734-0 (Version None)
Quarter: 2010Q3

REPORT INFORMATION
  Report Type: 
  Country: None (occurrence: None)
  Receive Date: 20100902
  Receipt Date: 20100825
  Transmission Date: 20110219
  Serious: Yes (Other)
  Sender: FDA-Public Use
  Company Number: US-AMGEN-QUU431856

PATIENT
  Sex: Male
  Weight: 96.6 kg

DRUGS (1)
  1. NPLATE [Suspect]
     Indication: IDIOPATHIC THROMBOCYTOPENIC PURPURA
     Dates: start: 20081125, end: 20100512

REACTIONS (3)
  - ARTERIOSCLEROSIS CORONARY ARTERY [None]
  - MANTLE CELL LYMPHOMA [None]
  - SPLENECTOMY [None]
